FAERS Safety Report 5807104-7 (Version None)
Quarter: 2008Q3

REPORT INFORMATION
  Report Type: 
  Country: None (occurrence: None)
  Receive Date: 20080711
  Receipt Date: 20080702
  Transmission Date: 20090109
  Serious: Yes (Disabling, Other)
  Sender: FDA-Public Use
  Company Number: FR-JNJFOC-20080603520

PATIENT
  Age: 54 Year
  Sex: Female
  Weight: 42 kg

DRUGS (10)
  1. REMICADE [Suspect]
     Route: 042
  2. REMICADE [Suspect]
     Route: 042
  3. REMICADE [Suspect]
     Route: 042
  4. REMICADE [Suspect]
     Route: 042
  5. REMICADE [Suspect]
     Route: 042
  6. REMICADE [Suspect]
     Dosage: EVERY 6-7 WEEKS
     Route: 042
  7. REMICADE [Suspect]
     Route: 042
  8. REMICADE [Suspect]
     Indication: CROHN'S DISEASE
     Route: 042
  9. IMUREL [Concomitant]
     Indication: CROHN'S DISEASE
  10. SOLUPRED [Concomitant]
     Indication: CROHN'S DISEASE

REACTIONS (8)
  - CORNEAL ABSCESS [None]
  - EYE PAIN [None]
  - KERATITIS [None]
  - LACRIMATION INCREASED [None]
  - PHOTOSENSITIVITY REACTION [None]
  - READING DISORDER [None]
  - ULCER [None]
  - ULCERATIVE KERATITIS [None]
